FAERS Safety Report 4402063-6 (Version None)
Quarter: 2004Q3

REPORT INFORMATION
  Report Type: 
  Country: None (occurrence: None)
  Receive Date: 20040719
  Receipt Date: 20040719
  Transmission Date: 20050211
  Serious: No
  Sender: FDA-Public Use
  Company Number: None

PATIENT
  Sex: Male
  Weight: 81.6475 kg

DRUGS (4)
  1. TAXOL [Suspect]
     Indication: ARTERIAL OCCLUSIVE DISEASE
     Dates: start: 20040301, end: 20040717
  2. PAXIL [Concomitant]
  3. ASPIRIN [Concomitant]
  4. ZOCOR [Concomitant]

REACTIONS (2)
  - MEDICAL DEVICE COMPLICATION [None]
  - POST PROCEDURAL PAIN [None]
